FAERS Safety Report 6925932-1 (Version None)
Quarter: 2010Q3

REPORT INFORMATION
  Report Type: 
  Country: None (occurrence: None)
  Receive Date: 20100816
  Receipt Date: 20100809
  Transmission Date: 20110219
  Serious: Yes (Other)
  Sender: FDA-Public Use
  Company Number: PHHO2010AU10968

PATIENT
  Sex: Female

DRUGS (2)
  1. CGP 57148B T35717+ [Suspect]
     Indication: SYNOVITIS
     Dosage: 400 MG
     Dates: start: 20100625
  2. CGP 57148B T35717+ [Suspect]
     Dosage: 200 MG

REACTIONS (3)
  - HEADACHE [None]
  - NAUSEA [None]
  - NEUROLOGICAL SYMPTOM [None]
